FAERS Safety Report 14102268 (Version 1)
Quarter: 2017Q4

REPORT INFORMATION
  Report Type: Report from Study
  Country: BR (occurrence: BR)
  Receive Date: 20171018
  Receipt Date: 20171018
  Transmission Date: 20180321
  Serious: Yes (Hospitalization, Other)
  Sender: FDA-Public Use
  Company Number: BR-BAYER-2017-191468

PATIENT
  Age: 42 Year
  Sex: Male

DRUGS (5)
  1. RISPERIDONE. [Concomitant]
     Active Substance: RISPERIDONE
     Indication: INSOMNIA
  2. RISPERIDONE. [Concomitant]
     Active Substance: RISPERIDONE
     Indication: NERVOUSNESS
  3. VENYL [Concomitant]
     Dates: start: 20171002
  4. FENERGAN [PROMETHAZINE] [Concomitant]
     Indication: HYPERSENSITIVITY
  5. BETAFERON [Suspect]
     Active Substance: INTERFERON BETA-1B
     Dosage: UNK
     Dates: start: 201507

REACTIONS (14)
  - Dizziness [Unknown]
  - Immunodeficiency [Unknown]
  - Depression [Unknown]
  - Nervousness [None]
  - Lethargy [Unknown]
  - Oromandibular dystonia [Unknown]
  - Headache [Unknown]
  - Renal failure [Unknown]
  - Anxiety [None]
  - Hypertension [Unknown]
  - Headache [Unknown]
  - Hypertension [Not Recovered/Not Resolved]
  - Depressed mood [Unknown]
  - Insomnia [None]

NARRATIVE: CASE EVENT DATE: 20170105
